FAERS Safety Report 13967075 (Version 11)
Quarter: 2018Q4

REPORT INFORMATION
  Report Type: Spontaneous
  Country: GB (occurrence: GB)
  Receive Date: 20170914
  Receipt Date: 20181002
  Transmission Date: 20190204
  Serious: Yes (Death, Other)
  Sender: FDA-Public Use
  Company Number: GB-JNJFOC-20170905683

PATIENT
  Age: 44 Year
  Sex: Female

DRUGS (7)
  1. ZOPICLONE [Suspect]
     Active Substance: ZOPICLONE
     Indication: SLEEP DISORDER
     Dosage: PRESCRIBED 14 TABLETS OF ZOPICLONE EVERY TWO WEEKS.??14 TABLET, FOR TWO WEEKS
     Route: 048
  2. PARACETAMOL [Suspect]
     Active Substance: ACETAMINOPHEN
     Route: 065
  3. PARACETAMOL PLUS CODEINE [Suspect]
     Active Substance: ACETAMINOPHEN\CODEINE PHOSPHATE
     Indication: PAIN
     Dosage: 28 TABLETS DAILY [112 TABLET, FOR TWO WEEKS]
     Route: 048
  4. PARACETAMOL PLUS CODEINE [Suspect]
     Active Substance: ACETAMINOPHEN\CODEINE PHOSPHATE
     Indication: PAIN
     Dosage: 28 DF, DAILY [112 TABLET, FOR TWO WEEKS]
     Route: 048
  5. MORPHINE SULFATE. [Suspect]
     Active Substance: MORPHINE SULFATE
     Indication: PRODUCT USED FOR UNKNOWN INDICATION
     Dosage: 6 OR 7 TABLETS
     Route: 065
     Dates: start: 20161014, end: 20161014
  6. PREGABALIN. [Suspect]
     Active Substance: PREGABALIN
     Indication: PRODUCT USED FOR UNKNOWN INDICATION
     Dosage: 3 DF TOTAL IN TOTAL
     Route: 065
     Dates: start: 20161015, end: 20161015
  7. PARACETAMOL [Suspect]
     Active Substance: ACETAMINOPHEN
     Indication: PRODUCT USED FOR UNKNOWN INDICATION
     Route: 065

REACTIONS (10)
  - Prescription drug used without a prescription [Fatal]
  - Drug abuse [Unknown]
  - Accidental overdose [Fatal]
  - Eye pain [Fatal]
  - Intentional product misuse [Fatal]
  - Toxicity to various agents [Fatal]
  - Vision blurred [Fatal]
  - Gait disturbance [Fatal]
  - Dysarthria [Fatal]
  - Drug diversion [Unknown]

NARRATIVE: CASE EVENT DATE: 201610
